FAERS Safety Report 9516092 (Version 1)
Quarter: 2013Q1

REPORT INFORMATION
  Report Type: Spontaneous
  Country: US (occurrence: None)
  Receive Date: 20130305
  Receipt Date: 20130305
  Transmission Date: 20140127
  Serious: Yes (Other)
  Sender: FDA-Public Use
  Company Number: 163-21880-12081427

PATIENT
  Age: 73 Year
  Sex: Female

DRUGS (2)
  1. REVLIMID (LENALIDOMIDE) (25 MILLIGRAM, CAPSULES) [Suspect]
     Indication: PLASMA CELL MYELOMA
     Dosage: 25 MG, 1 IN 1 D,  PO
     Route: 048
     Dates: start: 201206
  2. PACKED RED BLOOD CELLS (BLOOD CELLS, PACKED HUMAN) (UNKNOWN) [Concomitant]

REACTIONS (6)
  - Nausea [None]
  - Diarrhoea [None]
  - Somnolence [None]
  - Decreased appetite [None]
  - Weight decreased [None]
  - Blister [None]
